FAERS Safety Report 9453002 (Version 2)
Quarter: 2013Q3

REPORT INFORMATION
  Report Type: Report from Study
  Country: US (occurrence: US)
  Receive Date: 20130812
  Receipt Date: 20130814
  Transmission Date: 20140515
  Serious: Yes (Other)
  Sender: FDA-Public Use
  Company Number: US-ROCHE-1258448

PATIENT
  Sex: Male

DRUGS (16)
  1. PEGASYS [Suspect]
     Indication: HEPATITIS C
     Dosage: 1 IN THE LEG, DOSE: 1
     Route: 065
     Dates: start: 201211, end: 201307
  2. RIBAVIRIN [Suspect]
     Indication: HEPATITIS C
     Route: 048
     Dates: start: 201211, end: 201307
  3. INCIVEK [Suspect]
     Indication: HEPATITIS C
     Route: 048
     Dates: start: 201211, end: 201302
  4. WELLBUTRIN [Concomitant]
     Route: 048
     Dates: end: 201307
  5. BYETTA [Concomitant]
     Indication: DIABETES MELLITUS
     Route: 065
     Dates: end: 201307
  6. GLIMEPIRIDE [Concomitant]
     Indication: DIABETES MELLITUS
     Route: 048
     Dates: end: 201307
  7. INSULIN [Concomitant]
     Indication: DIABETES MELLITUS
     Route: 065
     Dates: end: 201307
  8. LANTUS [Concomitant]
     Indication: DIABETES MELLITUS
     Dosage: DOSE: 80 UNITS, HS
     Route: 065
     Dates: end: 201307
  9. METFORMIN [Concomitant]
     Indication: DIABETES MELLITUS
     Route: 048
     Dates: end: 201307
  10. LISINOPRIL [Concomitant]
     Route: 048
     Dates: end: 201307
  11. PROMETHAZINE [Concomitant]
     Indication: NAUSEA
     Route: 048
     Dates: end: 201307
  12. PROPANOLOLI HYDROCHLORIDUM [Concomitant]
     Indication: HEADACHE
     Dosage: DRUG REPORTED AS PROPANOLOL
     Route: 048
     Dates: end: 201307
  13. BENADRYL (CANADA) [Concomitant]
     Route: 048
  14. INDOMETHACIN [Concomitant]
     Indication: MIGRAINE
     Route: 065
     Dates: end: 201307
  15. OXYCODONE [Concomitant]
     Indication: BACK PAIN
     Dosage: ONLY TAKES 5 MG OCCASIONALLY
     Route: 065
  16. DIAZEPAM [Concomitant]
     Dosage: AT NIGHT
     Route: 065

REACTIONS (12)
  - Convulsion [Recovered/Resolved]
  - Transient ischaemic attack [Recovered/Resolved]
  - Suicidal ideation [Recovered/Resolved]
  - Homicidal ideation [Recovered/Resolved]
  - Hepatitis C [Not Recovered/Not Resolved]
  - Psychotic disorder [Recovered/Resolved]
  - Irritability [Recovered/Resolved]
  - Fatigue [Recovered/Resolved]
  - Judgement impaired [Recovered/Resolved]
  - Abnormal behaviour [Recovered/Resolved]
  - Weight decreased [Not Recovered/Not Resolved]
  - Fatigue [Recovered/Resolved]
